FAERS Safety Report 4720473-4 (Version None)
Quarter: 2005Q3

REPORT INFORMATION
  Report Type: 
  Country: None (occurrence: None)
  Receive Date: 20050721
  Receipt Date: 20040727
  Transmission Date: 20060218
  Serious: No
  Sender: FDA-Public Use
  Company Number: US-BRISTOL-MYERS SQUIBB COMPANY-12653291

PATIENT
  Age: 65 Year
  Sex: Female
  Weight: 100 kg

DRUGS (10)
  1. GLUCOVANCE [Suspect]
     Dosage: 2 TABS TWICE A DAY
     Route: 048
  2. PRAVACHOL [Concomitant]
  3. HYDROCHLOROTHIAZIDE [Concomitant]
  4. OMEPRAZOLE [Concomitant]
  5. RESTORIL [Concomitant]
  6. DARVOCET-N 100 [Concomitant]
  7. TYLENOL [Concomitant]
  8. IMODIUM [Concomitant]
  9. VITAMINS [Concomitant]
  10. CALCIUM GLUCONATE [Concomitant]

REACTIONS (1)
  - ANAEMIA [None]
